FAERS Safety Report 5195243-6 (Version None)
Quarter: 2006Q4

REPORT INFORMATION
  Report Type: 
  Country: None (occurrence: None)
  Receive Date: 20061229
  Receipt Date: 20061031
  Transmission Date: 20070319
  Serious: Yes (Death, Hospitalization)
  Sender: FDA-Public Use
  Company Number: TH-PFIZER INC-2006134251

PATIENT
  Sex: Female
  Weight: 62.4 kg

DRUGS (3)
  1. SU-011,248 [Suspect]
     Indication: METASTATIC RENAL CELL CARCINOMA
     Route: 048
     Dates: start: 20061115, end: 20061117
  2. SU-011,248 [Suspect]
     Route: 048
     Dates: start: 20061115, end: 20061117
  3. MEGACE [Concomitant]
     Route: 048
     Dates: start: 20060729

REACTIONS (2)
  - ASCITES [None]
  - DEATH [None]
